FAERS Safety Report 22604827 (Version 1)
Quarter: 2023Q2

REPORT INFORMATION
  Report Type: Spontaneous
  Country: JP (occurrence: JP)
  Receive Date: 20230615
  Receipt Date: 20230615
  Transmission Date: 20230721
  Serious: Yes (Other)
  Sender: FDA-Public Use
  Company Number: JP-MLMSERVICE-20230605-4324792-2

PATIENT
  Age: 1 Decade
  Sex: Female

DRUGS (14)
  1. CLONAZEPAM [Suspect]
     Active Substance: CLONAZEPAM
     Indication: Tonic convulsion
  2. LEVETIRACETAM [Suspect]
     Active Substance: LEVETIRACETAM
     Indication: Holoprosencephaly
  3. NITRAZEPAM [Suspect]
     Active Substance: NITRAZEPAM
     Indication: Holoprosencephaly
  4. DIAZEPAM [Suspect]
     Active Substance: DIAZEPAM
     Indication: Holoprosencephaly
     Route: 054
  5. PHENOBARBITAL [Suspect]
     Active Substance: PHENOBARBITAL
     Indication: Holoprosencephaly
  6. ZONISAMIDE [Suspect]
     Active Substance: ZONISAMIDE
     Indication: Holoprosencephaly
  7. CHLORAL HYDRATE DERIVATIVE [Concomitant]
     Indication: Tonic convulsion
  8. NITRAZEPAM [Suspect]
     Active Substance: NITRAZEPAM
     Indication: Tonic convulsion
  9. CLONAZEPAM [Suspect]
     Active Substance: CLONAZEPAM
     Indication: Holoprosencephaly
  10. NITRAZEPAM [Suspect]
     Active Substance: NITRAZEPAM
     Indication: Holoprosencephaly
  11. LEVETIRACETAM [Suspect]
     Active Substance: LEVETIRACETAM
     Indication: Epilepsy
  12. DIAZEPAM [Suspect]
     Active Substance: DIAZEPAM
     Indication: Tonic convulsion
     Route: 054
  13. PHENOBARBITAL [Suspect]
     Active Substance: PHENOBARBITAL
     Indication: Status epilepticus
  14. ZONISAMIDE [Suspect]
     Active Substance: ZONISAMIDE
     Indication: Epilepsy

REACTIONS (2)
  - Somnolence [Recovered/Resolved]
  - Loss of consciousness [Recovered/Resolved]
